FAERS Safety Report 22037524 (Version 2)
Quarter: 2025Q4

REPORT INFORMATION
  Report Type: Spontaneous
  Country: EU (occurrence: EU)
  Receive Date: 20230227
  Receipt Date: 20251022
  Transmission Date: 20260118
  Serious: Yes (Hospitalization)
  Sender: AUROBINDO
  Company Number: EU-AZEVEDOSP-2023-00109

PATIENT
  Age: 63 Year
  Sex: Male

DRUGS (4)
  1. EZETIMIBE [Suspect]
     Active Substance: EZETIMIBE
     Indication: Dyslipidaemia
     Dosage: UNK
     Route: 065
  2. ROSUVASTATIN [Suspect]
     Active Substance: ROSUVASTATIN
     Indication: Dyslipidaemia
     Dosage: UNK
     Route: 065
  3. AZILSARTAN KAMEDOXOMIL [Suspect]
     Active Substance: AZILSARTAN KAMEDOXOMIL
     Indication: Hypertension
     Dosage: UNK
     Route: 065
  4. CHLORTHALIDONE [Suspect]
     Active Substance: CHLORTHALIDONE
     Indication: Hypertension
     Dosage: UNK
     Route: 065

REACTIONS (1)
  - Hyponatraemia [Recovering/Resolving]
